FAERS Safety Report 9913064 (Version 2)
Quarter: 2014Q2

REPORT INFORMATION
  Report Type: Report from Study
  Country: US (occurrence: US)
  Receive Date: 20140220
  Receipt Date: 20140523
  Transmission Date: 20141212
  Serious: Yes (Other)
  Sender: FDA-Public Use
  Company Number: US-SA-2014SA019719

PATIENT
  Age: 71 Year
  Sex: Male
  Weight: 98.5 kg

DRUGS (11)
  1. LANTUS [Suspect]
     Indication: TYPE 2 DIABETES MELLITUS
     Dosage: DOSE:62 UNIT(S)
     Route: 058
     Dates: start: 2008
  2. EXENATIDE [Suspect]
     Indication: PRODUCT USED FOR UNKNOWN INDICATION
     Route: 065
  3. METFORMIN [Suspect]
     Indication: TYPE 2 DIABETES MELLITUS
     Route: 065
  4. ALL OTHER THERAPEUTIC PRODUCTS [Suspect]
     Indication: PRODUCT USED FOR UNKNOWN INDICATION
     Route: 065
  5. SOLOSTAR [Concomitant]
  6. BYETTA [Concomitant]
     Indication: TYPE 2 DIABETES MELLITUS
     Dates: start: 20130808
  7. ATORVASTATIN [Concomitant]
     Indication: HYPERCHOLESTEROLAEMIA
     Dates: start: 2002
  8. HYDROCHLOROTHIAZIDE [Concomitant]
     Indication: HYPERTENSION
     Dates: start: 2008
  9. TRANDOLAPRIL [Concomitant]
     Indication: HYPERTENSION
  10. PANTOPRAZOLE [Concomitant]
     Dates: start: 2012
  11. ASPIRIN [Concomitant]

REACTIONS (1)
  - Arrhythmia [Recovered/Resolved]
